FAERS Safety Report 7068653-X (Version None)
Quarter: 2010Q4

REPORT INFORMATION
  Report Type: 
  Country: None (occurrence: None)
  Receive Date: 20101028
  Receipt Date: 20101014
  Transmission Date: 20110411
  Serious: Yes (Other)
  Sender: FDA-Public Use
  Company Number: ES-AMGEN-KDC388859

PATIENT

DRUGS (2)
  1. DENOSUMAB [Suspect]
     Indication: PROSTATE CANCER
     Dosage: UNK UNK, Q4WK
     Route: 058
     Dates: start: 20070323, end: 20090731
  2. DOCETAXEL [Concomitant]
     Dosage: UNK UNK, UNK
     Dates: start: 20070601

REACTIONS (1)
  - OSTEONECROSIS OF JAW [None]
